FAERS Safety Report 20746115 (Version 1)
Quarter: 2022Q2

REPORT INFORMATION
  Report Type: Spontaneous
  Country: US (occurrence: None)
  Receive Date: 20220425
  Receipt Date: 20220425
  Transmission Date: 20220721
  Serious: No
  Sender: FDA-Public Use
  Company Number: None

PATIENT
  Age: 86 Year
  Sex: Male
  Weight: 85.73 kg

DRUGS (25)
  1. ERLEADA [Suspect]
     Active Substance: APALUTAMIDE
     Indication: Prostate cancer
     Dosage: FREQUENCY : DAILY;?
     Route: 048
  2. AMIODARONE HCI [Concomitant]
  3. AMLODIPINE [Concomitant]
  4. BESYLATE [Concomitant]
  5. CALCIUM + D [Concomitant]
  6. cloNIDINE HCI [Concomitant]
  7. DAROLUTAMIDE [Concomitant]
  8. FLOMAX FLUoxetine HCI [Concomitant]
  9. HYDRALAZINE HCI [Concomitant]
  10. LEVOTHYROXINE SODIUM [Concomitant]
  11. LISINOPRIL [Concomitant]
  12. LUPRON DEPOT (1-Month) [Concomitant]
  13. INTRAMUSCULA [Concomitant]
  14. METOPROLOL SUCCINATE ER [Concomitant]
  15. NORCO [Concomitant]
  16. ONDANSETRON [Concomitant]
  17. PREDNISONE [Concomitant]
  18. PROCHLORPERAZINE MALEATE [Concomitant]
  19. TEMPAZEPAM [Concomitant]
  20. TOPROL XL [Concomitant]
  21. TUMERIC [Concomitant]
  22. VIT E-MIN-HERB COM [Concomitant]
  23. VITAMIN B COMPLEX VITAMIN B12 [Concomitant]
  24. VITAMIN C [Concomitant]
  25. VITAMIN D-3 zinc [Concomitant]

REACTIONS (1)
  - Drug intolerance [None]
